FAERS Safety Report 9705439 (Version 3)
Quarter: 2013Q4

REPORT INFORMATION
  Report Type: Spontaneous
  Country: US (occurrence: US)
  Receive Date: 20131122
  Receipt Date: 20131213
  Transmission Date: 20140711
  Serious: Yes (Hospitalization, Other)
  Sender: FDA-Public Use
  Company Number: US-MPIJNJ-2013MPI000760

PATIENT
  Age: 49 Year
  Sex: Male
  Weight: 72.8 kg

DRUGS (18)
  1. VELCADE [Suspect]
     Indication: PLASMA CELL MYELOMA
     Dosage: 2.37 MG, ON DAYS 1, 4, 8 AND 11
     Route: 042
     Dates: start: 20130805, end: 20130815
  2. CYTOXAN [Suspect]
     Indication: PLASMA CELL MYELOMA
     Dosage: 546 MG, ON DAYS 1 AND 8 EVERY 21 DAYS
     Route: 042
     Dates: start: 20130805
  3. DEXAMETHASONE [Suspect]
     Indication: PLASMA CELL MYELOMA
     Dosage: 40 MG, QD
     Route: 042
     Dates: start: 20130805
  4. PAIN RELIEVER [Concomitant]
     Indication: SPINAL DISORDER
  5. ACYCLOVIR                          /00587301/ [Concomitant]
     Dosage: 400 MG, BID, FOR 30 DAYS
     Route: 048
     Dates: start: 20130805
  6. ONDANSETRON [Concomitant]
     Indication: NAUSEA
     Dosage: 8 MG, QD
     Route: 048
  7. ONDANSETRON [Concomitant]
     Indication: VOMITING
  8. PHENERGAN                          /00033001/ [Concomitant]
     Indication: NAUSEA
     Dosage: 25 MG, Q6HR
     Route: 048
  9. PHENERGAN                          /00033001/ [Concomitant]
     Indication: VOMITING
  10. SENNA                              /00142201/ [Concomitant]
     Dosage: UNK, BID
     Route: 048
     Dates: start: 20130805
  11. AMBIEN [Concomitant]
     Dosage: 5 MG, QD
     Route: 048
  12. ASPIRIN [Concomitant]
     Dosage: 81 MG, QD
     Route: 048
  13. PROTONIX [Concomitant]
     Dosage: 40 MG, QD
     Route: 048
  14. STOOL SOFTENER [Concomitant]
     Route: 048
  15. VALTREX [Concomitant]
     Dosage: 500 MG, QD
     Route: 048
  16. LEVAQUIN [Concomitant]
     Dosage: 500 MG, QD
     Route: 048
     Dates: start: 20130805, end: 20130815
  17. MORPHINE SULFATE [Concomitant]
     Dosage: 15 MG, Q8HR
     Route: 048
  18. SODIUM CHLORIDE [Concomitant]
     Route: 042

REACTIONS (2)
  - Ischaemic stroke [Recovered/Resolved]
  - Pathological fracture [Recovered/Resolved]
